FAERS Safety Report 15359596 (Version 3)
Quarter: 2019Q1

REPORT INFORMATION
  Report Type: Spontaneous
  Country: US (occurrence: US)
  Receive Date: 20180907
  Receipt Date: 20190227
  Transmission Date: 20190417
  Serious: Yes (Death, Hospitalization, Disabling, Other)
  Sender: FDA-Public Use
  Company Number: US-ASTRAZENECA-2018SF11934

PATIENT
  Age: 14367 Day
  Sex: Male
  Weight: 61.2 kg

DRUGS (19)
  1. LAMOTRIGINE. [Concomitant]
     Active Substance: LAMOTRIGINE
  2. DIVALPROEX SODIUM. [Concomitant]
     Active Substance: DIVALPROEX SODIUM
     Route: 065
  3. NEXIUM 24HR [Suspect]
     Active Substance: ESOMEPRAZOLE MAGNESIUM
     Indication: GASTROOESOPHAGEAL REFLUX DISEASE
     Route: 048
     Dates: start: 2009, end: 2017
  4. LEUCOVORIN. [Concomitant]
     Active Substance: LEUCOVORIN
  5. METRONIDAZOLE. [Concomitant]
     Active Substance: METRONIDAZOLE
  6. HYDROMORPHONE [Concomitant]
     Active Substance: HYDROMORPHONE
  7. NEXIUM 24HR [Suspect]
     Active Substance: ESOMEPRAZOLE MAGNESIUM
     Indication: DYSPEPSIA
     Route: 048
     Dates: start: 20090101, end: 20170718
  8. VITAMINS NOS [Concomitant]
     Active Substance: VITAMINS
     Indication: VITAMIN SUPPLEMENTATION
  9. FOSAPREPITANT [Concomitant]
     Active Substance: FOSAPREPITANT
  10. ACETAMINOPHEN. [Concomitant]
     Active Substance: ACETAMINOPHEN
  11. LORAZEPAM. [Concomitant]
     Active Substance: LORAZEPAM
  12. NEXIUM 24HR [Suspect]
     Active Substance: ESOMEPRAZOLE MAGNESIUM
     Indication: GASTROOESOPHAGEAL REFLUX DISEASE
     Route: 048
     Dates: start: 20090101, end: 20170718
  13. OXALIPLATIN. [Concomitant]
     Active Substance: OXALIPLATIN
  14. IOPAMIDOL [Concomitant]
     Active Substance: IOPAMIDOL
  15. PROPOFOL. [Concomitant]
     Active Substance: PROPOFOL
  16. OXYCODONE [Concomitant]
     Active Substance: OXYCODONE
  17. NEXIUM 24HR [Suspect]
     Active Substance: ESOMEPRAZOLE MAGNESIUM
     Indication: DYSPEPSIA
     Route: 048
     Dates: start: 2009, end: 2017
  18. ONDANSETRON [Concomitant]
     Active Substance: ONDANSETRON
  19. FLUOROURACIL. [Concomitant]
     Active Substance: FLUOROURACIL

REACTIONS (7)
  - Pneumonia [Fatal]
  - Adenocarcinoma gastric [Fatal]
  - Acute kidney injury [Not Recovered/Not Resolved]
  - Renal failure [Unknown]
  - Nephrogenic anaemia [Unknown]
  - Septic shock [Fatal]
  - Chronic kidney disease [Unknown]

NARRATIVE: CASE EVENT DATE: 20170710
